FAERS Safety Report 16539183 (Version 4)
Quarter: 2020Q1

REPORT INFORMATION
  Report Type: Report from Study
  Country: CA (occurrence: CA)
  Receive Date: 20190708
  Receipt Date: 20200225
  Transmission Date: 20200409
  Serious: Yes (Hospitalization, Other)
  Sender: FDA-Public Use
  Company Number: CA-BRISTOL-MYERS SQUIBB COMPANY-BMS-2019-047919

PATIENT
  Age: 60 Year
  Sex: Female

DRUGS (5)
  1. PERCOCET [Concomitant]
     Active Substance: ACETAMINOPHEN\OXYCODONE HYDROCHLORIDE
     Indication: PRODUCT USED FOR UNKNOWN INDICATION
     Dosage: UNK
     Route: 065
  2. ABATACEPT [Suspect]
     Active Substance: ABATACEPT
     Indication: PRODUCT USED FOR UNKNOWN INDICATION
     Dosage: 1000 MILLIGRAM, Q3WK
     Route: 042
  3. ABATACEPT [Suspect]
     Active Substance: ABATACEPT
     Indication: RHEUMATOID ARTHRITIS
     Dosage: 100 MILLIGRAM, QWK
     Route: 058
     Dates: start: 20190501
  4. ABATACEPT [Suspect]
     Active Substance: ABATACEPT
     Indication: RHEUMATOID ARTHRITIS
     Dosage: 1000 MILLIGRAM, Q4WK
     Route: 042
     Dates: start: 20190716
  5. HCT [Concomitant]
     Active Substance: HYDROCHLOROTHIAZIDE
     Indication: PRODUCT USED FOR UNKNOWN INDICATION
     Dosage: UNK
     Route: 065

REACTIONS (12)
  - Bronchitis [Not Recovered/Not Resolved]
  - Off label use [Unknown]
  - Myalgia [Unknown]
  - Arthralgia [Recovered/Resolved]
  - Peripheral swelling [Recovered/Resolved]
  - Nausea [Unknown]
  - Fall [Unknown]
  - Kidney infection [Unknown]
  - Tooth disorder [Unknown]
  - Productive cough [Not Recovered/Not Resolved]
  - Diarrhoea [Unknown]
  - Poor venous access [Unknown]

NARRATIVE: CASE EVENT DATE: 20190515
